FAERS Safety Report 7808718-5 (Version None)
Quarter: 2011Q4

REPORT INFORMATION
  Report Type: 
  Country: None (occurrence: None)
  Receive Date: 20111012
  Receipt Date: 20111010
  Transmission Date: 20120403
  Serious: Yes (Other)
  Sender: FDA-Public Use
  Company Number: US-PFIZER INC-2011241661

PATIENT
  Sex: Female
  Weight: 63.5 kg

DRUGS (5)
  1. ARTHROTEC [Suspect]
     Indication: ARTHRITIS
  2. ALDACTONE [Concomitant]
     Dosage: UNK
  3. ARTHROTEC [Suspect]
     Indication: NECK PAIN
  4. ARTHROTEC [Suspect]
     Indication: MUSCLE SPASMS
  5. ARTHROTEC [Suspect]
     Indication: BACK PAIN
     Dosage: 50/200 MG/MCG, 1X/DAY
     Route: 048
     Dates: start: 20110801, end: 20111002

REACTIONS (1)
  - RASH GENERALISED [None]
